FAERS Safety Report 7058301-7 (Version None)
Quarter: 2010Q4

REPORT INFORMATION
  Report Type: 
  Country: None (occurrence: None)
  Receive Date: 20101022
  Receipt Date: 20101015
  Transmission Date: 20110411
  Serious: Yes (Other)
  Sender: FDA-Public Use
  Company Number: GB-TEVA-251135USA

PATIENT
  Sex: Male

DRUGS (1)
  1. PIMOZIDE TABLETS [Suspect]
     Dosage: THE SUSPECT MEDICATION WAS TAKEN BY FATHER
     Route: 065

REACTIONS (6)
  - AKATHISIA [None]
  - BLOOD PRESSURE INCREASED [None]
  - DRUG EXPOSURE DURING PREGNANCY [None]
  - DRY MOUTH [None]
  - TYPE 1 DIABETES MELLITUS [None]
  - WITHDRAWAL SYNDROME [None]
